FAERS Safety Report 5839185-9 (Version None)
Quarter: 2008Q3

REPORT INFORMATION
  Report Type: 
  Country: None (occurrence: None)
  Receive Date: 20080808
  Receipt Date: 20080724
  Transmission Date: 20090109
  Serious: Yes (Hospitalization)
  Sender: FDA-Public Use
  Company Number: FR-MERCK-0807FRA00092

PATIENT
  Age: 83 Year
  Sex: Male

DRUGS (6)
  1. INVANZ [Suspect]
     Indication: URINARY TRACT INFECTION
     Route: 042
     Dates: start: 20080625, end: 20080701
  2. PRIMAXIN [Suspect]
     Indication: URINARY TRACT INFECTION
     Route: 042
     Dates: start: 20080614, end: 20080624
  3. PREDNISONE [Concomitant]
     Route: 048
  4. TACROLIMUS [Concomitant]
     Route: 048
  5. MYCOPHENOLATE MOFETIL [Concomitant]
     Route: 065
  6. FOSFOMYCIN [Concomitant]
     Indication: URINARY TRACT INFECTION
     Route: 065
     Dates: start: 20080614, end: 20080701

REACTIONS (3)
  - CONFUSIONAL STATE [None]
  - DISORIENTATION [None]
  - HALLUCINATION, VISUAL [None]
